FAERS Safety Report 20645720 (Version 1)
Quarter: 2022Q1

REPORT INFORMATION
  Report Type: Report from Study
  Country: US (occurrence: US)
  Receive Date: 20220328
  Receipt Date: 20220328
  Transmission Date: 20220424
  Serious: Yes (Hospitalization)
  Sender: FDA-Public Use
  Company Number: US-SA-2022SA096845

PATIENT
  Age: 18 Year
  Sex: Female

DRUGS (1)
  1. AVALGLUCOSIDASE ALFA-NGPT [Suspect]
     Active Substance: AVALGLUCOSIDASE ALFA-NGPT
     Indication: Glycogen storage disease type II
     Dosage: 900 MG, QOW
     Route: 042
     Dates: start: 20220302

REACTIONS (4)
  - Pyrexia [Unknown]
  - Depression [Unknown]
  - Urine output decreased [Unknown]
  - Decreased appetite [Unknown]

NARRATIVE: CASE EVENT DATE: 20220303
